FAERS Safety Report 23880733 (Version 3)
Quarter: 2024Q4

REPORT INFORMATION
  Report Type: Report from Study
  Country: JP (occurrence: JP)
  Receive Date: 20240521
  Receipt Date: 20241210
  Transmission Date: 20250114
  Serious: Yes (Hospitalization, Other)
  Sender: GENMAB
  Company Number: JP-GENMAB-2023-02505AA

PATIENT
  Age: 55 Year
  Sex: Male
  Weight: 100.3 kg

DRUGS (7)
  1. EPKINLY [Suspect]
     Active Substance: EPCORITAMAB-BYSP
     Indication: Diffuse large B-cell lymphoma refractory
     Dosage: 0.16 MILLIGRAM, SINGLE
     Route: 058
     Dates: start: 20231207, end: 20231207
  2. EPKINLY [Suspect]
     Active Substance: EPCORITAMAB-BYSP
     Dosage: 0.8 MILLIGRAM, SINGLE
     Route: 058
     Dates: start: 20231214, end: 20231214
  3. EPKINLY [Suspect]
     Active Substance: EPCORITAMAB-BYSP
     Dosage: 48 MILLIGRAM
     Route: 058
     Dates: start: 20231221, end: 20240328
  4. PREDNISOLONE [Concomitant]
     Active Substance: PREDNISOLONE
     Indication: Prophylaxis
     Dosage: UNK, ADMINISTERED ON DAY1, DAY2, DAY3 AND DAY4 OF ADMINISTRATION OF EPKINLY
     Dates: start: 20231207, end: 20231224
  5. POLARAMINE [Concomitant]
     Active Substance: DEXCHLORPHENIRAMINE MALEATE
     Indication: Prophylaxis
     Dosage: UNK, ADMINISTERED ON  DAY1 OF ADMINISTRATION OF EPKINLY
     Dates: start: 20231207, end: 20231221
  6. ACETAMINOPHEN [Concomitant]
     Active Substance: ACETAMINOPHEN
     Indication: Prophylaxis
     Dosage: UNK, ADMINISTERED ON  DAY1 OF ADMINISTRATION OF EPKINLY
     Dates: start: 20231207, end: 20231221
  7. SOLDEM 3A [Concomitant]
     Active Substance: CARBOHYDRATES\POTASSIUM CHLORIDE\SODIUM CHLORIDE\SODIUM LACTATE
     Indication: Fluid replacement
     Dosage: 1.5 LITTLES, CONTINUOUS INTRAVENOUS INFUSION BEFORE AND AFTER THERAPY, ADMINISTERED ON DAY1 OF ADMIN
     Dates: start: 20231207, end: 20240328

REACTIONS (4)
  - Enterocolitis bacterial [Recovering/Resolving]
  - Diffuse large B-cell lymphoma refractory [Unknown]
  - Cytokine release syndrome [Recovered/Resolved]
  - Cytomegalovirus test positive [Not Recovered/Not Resolved]

NARRATIVE: CASE EVENT DATE: 20231222
